FAERS Safety Report 5058338-3 (Version None)
Quarter: 2006Q2

REPORT INFORMATION
  Report Type: 
  Country: None (occurrence: None)
  Receive Date: 20060628
  Receipt Date: 20060324
  Transmission Date: 20061013
  Serious: Yes (Hospitalization)
  Sender: FDA-Public Use
  Company Number: PHEH2006US04034

PATIENT
  Age: 52 Year
  Sex: Female
  Weight: 73 kg

DRUGS (5)
  1. SIMULECT [Suspect]
     Indication: RENAL TRANSPLANT
     Dosage: 20 MG, ONCE/SINGLE, INTRAVENOUS
     Route: 042
     Dates: start: 20051230, end: 20051230
  2. SIMULECT [Suspect]
     Dosage: 20MG, ONCE/SINGLE, INTRAVENOUS
     Route: 042
     Dates: start: 20060104, end: 20060104
  3. PROGRAF [Concomitant]
  4. CELLCEPT (MYCOPHENOLATE MOFEETIL) [Concomitant]
  5. PREDNISONE TAB [Concomitant]

REACTIONS (2)
  - BLOOD CREATININE INCREASED [None]
  - KIDNEY TRANSPLANT REJECTION [None]
